FAERS Safety Report 18216964 (Version 1)
Quarter: 2020Q3

REPORT INFORMATION
  Report Type: Spontaneous
  Country: US (occurrence: US)
  Receive Date: 20200901
  Receipt Date: 20200901
  Transmission Date: 20201103
  Serious: No
  Sender: FDA-Public Use
  Company Number: US-TORRENT-00009442

PATIENT

DRUGS (1)
  1. MONTELUKAST SODIUM IR TABLETS [Suspect]
     Active Substance: MONTELUKAST SODIUM
     Indication: PRODUCT USED FOR UNKNOWN INDICATION
     Dosage: UNKNOWN

REACTIONS (1)
  - Product odour abnormal [Unknown]
